FAERS Safety Report 8583747-5 (Version None)
Quarter: 2012Q3

REPORT INFORMATION
  Report Type: 
  Country: None (occurrence: None)
  Receive Date: 20120810
  Receipt Date: 20120719
  Transmission Date: 20120928
  Serious: Yes (Other)
  Sender: FDA-Public Use
  Company Number: JP-009507513-1207JPN007973

PATIENT

DRUGS (3)
  1. REBETOL [Suspect]
     Indication: HEPATITIS C
     Route: 048
     Dates: start: 20120620, end: 20120704
  2. TELAVIC [Suspect]
     Indication: HEPATITIS C
     Route: 048
     Dates: start: 20120620, end: 20120704
  3. PEG-INTRON [Suspect]
     Indication: HEPATITIS C
     Dosage: 1.9MCG/KG
     Route: 058
     Dates: start: 20120620, end: 20120704

REACTIONS (1)
  - NEUTROPHIL COUNT DECREASED [None]
